FAERS Safety Report 8523117 (Version 2)
Quarter: 2013Q4

REPORT INFORMATION
  Report Type: Report from Study
  Country: CN (occurrence: CN)
  Receive Date: 20120420
  Receipt Date: 20131017
  Transmission Date: 20140711
  Serious: Yes (Hospitalization)
  Sender: FDA-Public Use
  Company Number: CN-JNJFOC-20120109158

PATIENT
  Age: 31 Year
  Sex: Male
  Weight: 63 kg

DRUGS (16)
  1. GOLIMUMAB [Suspect]
     Indication: ANKYLOSING SPONDYLITIS
     Route: 058
     Dates: start: 20111202
  2. GOLIMUMAB [Suspect]
     Indication: ANKYLOSING SPONDYLITIS
     Dosage: WEEK 36 DAY 253
     Route: 058
     Dates: start: 20110907
  3. GOLIMUMAB [Suspect]
     Indication: ANKYLOSING SPONDYLITIS
     Dosage: WEEK 40 DAY 285
     Route: 058
     Dates: start: 20111009
  4. GOLIMUMAB [Suspect]
     Indication: ANKYLOSING SPONDYLITIS
     Dosage: WEEK 44, DAY 310
     Route: 058
     Dates: start: 20111103
  5. GOLIMUMAB [Suspect]
     Indication: ANKYLOSING SPONDYLITIS
     Dosage: WEEK 32, DAY 225
     Route: 058
     Dates: start: 20110810
  6. GOLIMUMAB [Suspect]
     Indication: ANKYLOSING SPONDYLITIS
     Dosage: WEEK 16 DAY 113
     Route: 058
     Dates: start: 20110420
  7. GOLIMUMAB [Suspect]
     Indication: ANKYLOSING SPONDYLITIS
     Dosage: DAY 197 WEEK 28
     Route: 058
     Dates: start: 20110713
  8. GOLIMUMAB [Suspect]
     Indication: ANKYLOSING SPONDYLITIS
     Dosage: DAY 169 WEEK 24
     Route: 058
     Dates: start: 20110615
  9. GOLIMUMAB [Suspect]
     Indication: ANKYLOSING SPONDYLITIS
     Dosage: DAY 141 WEEK 20
     Route: 058
     Dates: start: 20110518
  10. PLACEBO [Suspect]
     Indication: ANKYLOSING SPONDYLITIS
     Dosage: DAY 57 (WEEK 8)
     Route: 058
     Dates: start: 20110223
  11. PLACEBO [Suspect]
     Indication: ANKYLOSING SPONDYLITIS
     Dosage: DAY 83 (WEEK 12)
     Route: 058
     Dates: start: 20110321
  12. PLACEBO [Suspect]
     Indication: ANKYLOSING SPONDYLITIS
     Dosage: DAY 29 (WEEK 4)
     Route: 058
     Dates: start: 20110126
  13. PLACEBO [Suspect]
     Indication: ANKYLOSING SPONDYLITIS
     Dosage: DAY 1 (WEEK 0)
     Route: 058
     Dates: start: 20101229
  14. ISONIAZID [Concomitant]
     Route: 048
     Dates: start: 20120124
  15. PYRAZINAMIDE [Concomitant]
     Route: 048
     Dates: start: 20120124
  16. RIFAMPICIN [Concomitant]
     Route: 048
     Dates: start: 20120124

REACTIONS (1)
  - Tuberculous pleurisy [Recovered/Resolved with Sequelae]
